FAERS Safety Report 7531955-4 (Version None)
Quarter: 2011Q2

REPORT INFORMATION
  Report Type: 
  Country: None (occurrence: None)
  Receive Date: 20110608
  Receipt Date: 20110601
  Transmission Date: 20111010
  Serious: Yes (Death)
  Sender: FDA-Public Use
  Company Number: TW-BAXTER-2011BH018348

PATIENT
  Sex: Female

DRUGS (6)
  1. DIANEAL [Suspect]
     Indication: PERITONEAL DIALYSIS
     Route: 033
     Dates: start: 20100801
  2. EXTRANEAL [Suspect]
     Route: 033
     Dates: start: 20100801
  3. DIANEAL [Suspect]
     Indication: PERITONEAL DIALYSIS
     Route: 033
     Dates: start: 20100801
  4. DIANEAL [Suspect]
     Route: 033
     Dates: start: 20100801
  5. EXTRANEAL [Suspect]
     Indication: PERITONEAL DIALYSIS
     Route: 033
     Dates: start: 20100801
  6. DIANEAL [Suspect]
     Route: 033
     Dates: start: 20100801

REACTIONS (1)
  - DEATH [None]
